FAERS Safety Report 14849371 (Version 4)
Quarter: 2019Q4

REPORT INFORMATION
  Report Type: Report from Study
  Country: MX (occurrence: MX)
  Receive Date: 20180504
  Receipt Date: 20191210
  Transmission Date: 20200122
  Serious: Yes (Other)
  Sender: FDA-Public Use
  Company Number: PHHY2018MX077074

PATIENT
  Age: 59 Year
  Sex: Male

DRUGS (1)
  1. EXFORGE HCT [Suspect]
     Active Substance: AMLODIPINE BESYLATE\HYDROCHLOROTHIAZIDE\VALSARTAN
     Indication: HYPERTENSION
     Dosage: 1 DF (AMLODIPINE 5MG, HYDROCHLOROTHIAZIDE 12.5MG, VALSARTAN 160MG), QD
     Route: 048
     Dates: start: 201706

REACTIONS (4)
  - Renal disorder [Unknown]
  - Renal cancer [Unknown]
  - Pain [Unknown]
  - Dental discomfort [Unknown]

NARRATIVE: CASE EVENT DATE: 20180423
